FAERS Safety Report 4547279-3 (Version None)
Quarter: 2005Q1

REPORT INFORMATION
  Report Type: 
  Country: None (occurrence: None)
  Receive Date: 20050105
  Receipt Date: 20041215
  Transmission Date: 20050727
  Serious: Yes (Hospitalization)
  Sender: FDA-Public Use
  Company Number: B0361957A

PATIENT
  Age: 16 Year
  Sex: Female

DRUGS (1)
  1. DEXAMPHETAMINE SULPHATE (GENERIC) (DEXTROAMPHETAMINE SULFATE) [Suspect]
     Indication: ATTENTION DEFICIT/HYPERACTIVITY DISORDER
     Dosage: 10 MG/PER DAY

REACTIONS (9)
  - ARRHYTHMIA [None]
  - DYSKINESIA [None]
  - HEADACHE [None]
  - HYPERREFLEXIA [None]
  - MYOCLONUS [None]
  - PALPITATIONS [None]
  - SOMNOLENCE [None]
  - STRESS [None]
  - TACHYCARDIA [None]
